FAERS Safety Report 6824032-9 (Version None)
Quarter: 2010Q3

REPORT INFORMATION
  Report Type: 
  Country: None (occurrence: None)
  Receive Date: 20100708
  Receipt Date: 20061004
  Transmission Date: 20110219
  Serious: No
  Sender: FDA-Public Use
  Company Number: US-PFIZER INC-2006112283

PATIENT
  Sex: Male
  Weight: 61.23 kg

DRUGS (7)
  1. CHANTIX [Suspect]
     Indication: SMOKING CESSATION THERAPY
     Dates: start: 20060905
  2. SERTRALINE HCL [Concomitant]
  3. OXYCONTIN [Concomitant]
  4. DILAUDID [Concomitant]
  5. IBUPROFEN [Concomitant]
  6. XANAX [Concomitant]
  7. ZOLOFT [Concomitant]

REACTIONS (5)
  - CONSTIPATION [None]
  - DIARRHOEA [None]
  - DIZZINESS [None]
  - MUSCLE SPASMS [None]
  - NAUSEA [None]
